FAERS Safety Report 6844844-5 (Version None)
Quarter: 2010Q3

REPORT INFORMATION
  Report Type: 
  Country: None (occurrence: None)
  Receive Date: 20100715
  Receipt Date: 20100715
  Transmission Date: 20110219
  Serious: Yes (Death, Hospitalization)
  Sender: FDA-Public Use
  Company Number: IT-WYE-G05986610

PATIENT
  Sex: Female

DRUGS (9)
  1. TAZOCIN [Suspect]
     Indication: SEPSIS
     Route: 042
     Dates: start: 20100331, end: 20100410
  2. HUMULIN R [Concomitant]
     Indication: TYPE 2 DIABETES MELLITUS
     Dosage: 300 IU (INFERIOR TO 100)
     Route: 058
  3. TENORMIN [Concomitant]
     Dosage: 50 MG
     Route: 048
  4. PRILOSEC [Concomitant]
     Dosage: 80 MG
     Route: 042
  5. VASTAREL [Concomitant]
     Dosage: 60MG
     Route: 048
  6. NORMIX [Concomitant]
     Dosage: 120MG
     Route: 048
  7. LANOXIN [Concomitant]
     Dosage: 125 UG
     Route: 048
  8. ALBUMIN (HUMAN) [Concomitant]
     Dosage: 100 MG
     Route: 042
  9. DEURSIL [Concomitant]
     Dosage: 900MG
     Route: 048

REACTIONS (2)
  - ACUTE FEBRILE NEUTROPHILIC DERMATOSIS [None]
  - SEPTIC SHOCK [None]
